FAERS Safety Report 14826741 (Version 1)
Quarter: 2018Q2

REPORT INFORMATION
  Report Type: Spontaneous
  Country: FR (occurrence: FR)
  Receive Date: 20180430
  Receipt Date: 20180430
  Transmission Date: 20180711
  Serious: Yes (Hospitalization)
  Sender: FDA-Public Use
  Company Number: FR-ROCHE-2115984

PATIENT
  Age: 53 Year
  Sex: Male

DRUGS (2)
  1. VALIUM [Suspect]
     Active Substance: DIAZEPAM
     Indication: DELIRIUM
     Dosage: AU MOINS 30 GOUTTES SOIT 10 MG X 3/J
     Route: 048
     Dates: start: 20170106, end: 20170106
  2. TERCIAN [Interacting]
     Active Substance: CYAMEMAZINE
     Indication: DELIRIUM
     Dosage: AU MOINS 75 MG/J
     Route: 048
     Dates: start: 20170106, end: 20170106

REACTIONS (5)
  - Sedation [Recovered/Resolved]
  - Oxygen saturation decreased [Recovered/Resolved]
  - Dysarthria [Recovered/Resolved]
  - Bradycardia [Recovered/Resolved]
  - Dry mouth [Recovered/Resolved]

NARRATIVE: CASE EVENT DATE: 20170106
